FAERS Safety Report 23913275 (Version 1)
Quarter: 2024Q2

REPORT INFORMATION
  Report Type: Spontaneous
  Country: US (occurrence: US)
  Receive Date: 20240529
  Receipt Date: 20240529
  Transmission Date: 20240715
  Serious: No
  Sender: FDA-Public Use
  Company Number: US-ALK-ABELLO A/S-2024AA001190

PATIENT

DRUGS (7)
  1. CRANGON SHRIMP [Suspect]
     Active Substance: CRANGON SHRIMP
     Indication: Diagnostic procedure
     Dosage: UNK
     Dates: start: 20240205
  2. MIXED SHELLFISH [Suspect]
     Active Substance: CRAB LEG, UNSPECIFIED\LOBSTER, UNSPECIFIED\OYSTER, UNSPECIFIED\SHRIMP, UNSPECIFIED
     Indication: Diagnostic procedure
     Dosage: UNK
     Dates: start: 20240205
  3. LOSARTAN [Concomitant]
     Active Substance: LOSARTAN
  4. ZOLOFT [Concomitant]
     Active Substance: SERTRALINE HYDROCHLORIDE
  5. LACTONE [Concomitant]
  6. PEPCID [Concomitant]
     Active Substance: FAMOTIDINE
  7. PHENTERMINE [Concomitant]
     Active Substance: PHENTERMINE

REACTIONS (1)
  - False negative investigation result [Unknown]
